FAERS Safety Report 7094546-8 (Version None)
Quarter: 2010Q4

REPORT INFORMATION
  Report Type: 
  Country: None (occurrence: None)
  Receive Date: 20101110
  Receipt Date: 20101104
  Transmission Date: 20110411
  Serious: Yes (Other)
  Sender: FDA-Public Use
  Company Number: US-SANOFI-AVENTIS-2010SA067383

PATIENT
  Age: 39 Year
  Sex: Female

DRUGS (2)
  1. AMBIEN [Suspect]
     Indication: INSOMNIA
     Route: 048
     Dates: start: 20101031, end: 20101031
  2. AMBIEN [Suspect]
     Indication: GASTROINTESTINAL DISORDER
     Route: 048
     Dates: start: 20101031, end: 20101031

REACTIONS (10)
  - ABNORMAL BEHAVIOUR [None]
  - ABNORMAL SLEEP-RELATED EVENT [None]
  - AFFECT LABILITY [None]
  - AMNESIA [None]
  - DEPRESSED MOOD [None]
  - FEELING JITTERY [None]
  - INSOMNIA [None]
  - PHYSICAL ASSAULT [None]
  - TACHYPHRENIA [None]
  - TREMOR [None]
